FAERS Safety Report 11310220 (Version 3)
Quarter: 2015Q3

REPORT INFORMATION
  Report Type: Spontaneous
  Country: BR (occurrence: BR)
  Receive Date: 20150724
  Receipt Date: 20150731
  Transmission Date: 20151125
  Serious: Yes (Other)
  Sender: FDA-Public Use
  Company Number: BR-ABBVIE-14P-020-1197549-00

PATIENT
  Sex: Female
  Weight: 66 kg

DRUGS (5)
  1. SYNTHROID [Suspect]
     Active Substance: LEVOTHYROXINE SODIUM
     Route: 048
     Dates: end: 201507
  2. SYNTHROID [Suspect]
     Active Substance: LEVOTHYROXINE SODIUM
     Indication: PRODUCT USED FOR UNKNOWN INDICATION
     Route: 048
  3. SYNTHROID [Suspect]
     Active Substance: LEVOTHYROXINE SODIUM
     Route: 048
  4. SYNTHROID [Suspect]
     Active Substance: LEVOTHYROXINE SODIUM
     Dosage: 125MCG; ONE TABLET OF 25MCG AND ONE TABLET OF 100MCG
     Route: 048
     Dates: start: 201507
  5. SYNTHROID [Suspect]
     Active Substance: LEVOTHYROXINE SODIUM
     Dosage: 125MCG; ONE TABLET OF 25MCG AND ONE TABLET OF 100MCG
     Route: 048

REACTIONS (19)
  - Parathyroidectomy [Unknown]
  - Bone pain [Unknown]
  - Lip pain [Unknown]
  - Insomnia [Unknown]
  - Panic disorder [Recovered/Resolved]
  - Blood thyroid stimulating hormone decreased [Unknown]
  - Asthenia [Unknown]
  - Hypercalcaemia [Unknown]
  - Papillary thyroid cancer [Unknown]
  - Weight increased [Unknown]
  - Tremor [Unknown]
  - Fatigue [Unknown]
  - Intentional product misuse [Unknown]
  - Suffocation feeling [Unknown]
  - Malaise [Unknown]
  - Pain in extremity [Unknown]
  - Depression [Recovered/Resolved]
  - Incorrect dose administered [Unknown]
  - Seizure [Unknown]

NARRATIVE: CASE EVENT DATE: 2012
